FAERS Safety Report 14332490 (Version 1)
Quarter: 2017Q4

REPORT INFORMATION
  Report Type: Spontaneous
  Country: US (occurrence: US)
  Receive Date: 20171227
  Receipt Date: 20171227
  Transmission Date: 20180321
  Serious: No
  Sender: FDA-Public Use
  Company Number: None

PATIENT
  Sex: Female
  Weight: 79.38 kg

DRUGS (2)
  1. PREDNISONE UNKNOWN GENERIC [Suspect]
     Active Substance: PREDNISONE
  2. XELJANZ XR [Suspect]
     Active Substance: TOFACITINIB CITRATE
     Indication: RHEUMATOID ARTHRITIS
     Route: 048

REACTIONS (4)
  - Paranasal sinus discomfort [None]
  - Insomnia [None]
  - Vision blurred [None]
  - Asthenopia [None]
